FAERS Safety Report 23632048 (Version 1)
Quarter: 2024Q1

REPORT INFORMATION
  Report Type: Spontaneous
  Country: US (occurrence: None)
  Receive Date: 20240313
  Receipt Date: 20240313
  Transmission Date: 20240410
  Serious: Yes (Disabling)
  Sender: FDA-Public Use
  Company Number: None

PATIENT
  Age: 75 Year
  Sex: Female
  Weight: 50.4 kg

DRUGS (3)
  1. DERMASIL [Suspect]
     Active Substance: DIMETHICONE
     Indication: Dry skin
     Dates: start: 20240309, end: 20240310
  2. CLARITIN [Concomitant]
     Active Substance: LORATADINE
  3. Centrum Silver multi-vitamin [Concomitant]

REACTIONS (6)
  - Rash erythematous [None]
  - Application site pruritus [None]
  - Urticaria [None]
  - Feeling hot [None]
  - Pain [None]
  - Hypersensitivity [None]

NARRATIVE: CASE EVENT DATE: 20240310
